FAERS Safety Report 6482804-7 (Version None)
Quarter: 2009Q4

REPORT INFORMATION
  Report Type: 
  Country: None (occurrence: None)
  Receive Date: 20091209
  Receipt Date: 20091130
  Transmission Date: 20100525
  Serious: No
  Sender: FDA-Public Use
  Company Number: US-JNJFOC-20091200388

PATIENT
  Sex: Female
  Weight: 65.77 kg

DRUGS (13)
  1. SANDOZ FENTANYL TRANSDERMAL SYSTEM [Suspect]
     Route: 062
     Dates: start: 20090901
  2. SANDOZ FENTANYL TRANSDERMAL SYSTEM [Suspect]
     Indication: MUSCULAR DYSTROPHY
     Route: 062
     Dates: start: 20090901
  3. CRESTOR [Concomitant]
     Indication: CORONARY ARTERY OCCLUSION
     Route: 048
  4. GABAPENTIN [Concomitant]
     Indication: PAIN
     Dosage: 300 MG- 2 CAPSULES- 4 TIMES
     Route: 048
  5. NITROGLYCERIN [Concomitant]
     Indication: CARDIAC DISORDER
     Route: 062
  6. NAPROSYN [Concomitant]
     Indication: ARTHRITIS
     Route: 048
  7. CITALOPRAM HYDROBROMIDE [Concomitant]
     Indication: ANTIDEPRESSANT THERAPY
     Route: 048
  8. OMEPRAZOLE [Concomitant]
     Indication: GASTROOESOPHAGEAL REFLUX DISEASE
     Route: 048
  9. ENALAPRIL [Concomitant]
     Indication: RENAL DISORDER
     Route: 048
  10. DICYCLOMINE [Concomitant]
     Indication: CLOSTRIDIAL INFECTION
     Route: 048
  11. ATENOLOL [Concomitant]
     Indication: CARDIAC DISORDER
     Route: 048
  12. PLAVIX [Concomitant]
     Indication: PROPHYLAXIS
     Route: 048
  13. FUROSEMIDE [Concomitant]
     Indication: DIURETIC THERAPY
     Route: 048

REACTIONS (3)
  - DRUG INEFFECTIVE [None]
  - HYPERHIDROSIS [None]
  - WRONG TECHNIQUE IN DRUG USAGE PROCESS [None]
